FAERS Safety Report 7369426-0 (Version None)
Quarter: 2011Q1

REPORT INFORMATION
  Report Type: 
  Country: None (occurrence: None)
  Receive Date: 20110323
  Receipt Date: 20110323
  Transmission Date: 20110831
  Serious: Yes (Death, Other)
  Sender: FDA-Public Use
  Company Number: TW-ROCHE-766947

PATIENT
  Age: 29 Year
  Sex: Male
  Weight: 107 kg

DRUGS (1)
  1. TAMIFLU [Suspect]
     Indication: INFLUENZA
     Route: 065
     Dates: start: 20110201

REACTIONS (2)
  - BACTERIAL INFECTION [None]
  - SEPTIC SHOCK [None]
